FAERS Safety Report 5532953-2 (Version None)
Quarter: 2007Q4

REPORT INFORMATION
  Report Type: 
  Country: None (occurrence: None)
  Receive Date: 20071129
  Receipt Date: 20071129
  Transmission Date: 20080405
  Serious: Yes (Hospitalization)
  Sender: FDA-Public Use
  Company Number: None

PATIENT
  Age: 51 Year
  Sex: Female
  Weight: 65 kg

DRUGS (10)
  1. CHANTIX [Suspect]
     Indication: SMOKING CESSATION THERAPY
     Dosage: 1 MG  BID  OROPHARINGEAL
     Route: 049
     Dates: start: 20071024, end: 20071119
  2. FAMOTIDINE [Concomitant]
  3. PROMETHAZINE [Concomitant]
  4. ALBUTEROL [Concomitant]
  5. ONDANSETRON [Concomitant]
  6. MORPHINE [Concomitant]
  7. HALOPERIDOL [Concomitant]
  8. LORAZEPAM [Concomitant]
  9. CYCLOBENZAPRINE HCL [Concomitant]
  10. CLONIDINE [Concomitant]

REACTIONS (3)
  - PARANOIA [None]
  - POSTOPERATIVE ILEUS [None]
  - PSYCHOTIC DISORDER [None]
